FAERS Safety Report 7769384 (Version 6)
Quarter: 2013Q4

REPORT INFORMATION
  Report Type: Spontaneous
  Country: US (occurrence: US)
  Receive Date: 20110121
  Receipt Date: 20131007
  Transmission Date: 20140711
  Serious: Yes (Other)
  Sender: FDA-Public Use
  Company Number: US-PFIZER INC-2011012342

PATIENT
  Age: 73 Year
  Sex: Female
  Weight: 73.02 kg

DRUGS (3)
  1. LIPITOR [Suspect]
     Indication: BLOOD CHOLESTEROL INCREASED
     Dosage: 80 MG, ONCE A DAY IN EVENING
     Route: 048
     Dates: start: 2007, end: 20130607
  2. LIPITOR [Suspect]
     Indication: CARDIAC DISORDER
  3. PRAVASTATIN SODIUM [Suspect]
     Indication: CARDIAC DISORDER
     Dosage: ONE TABLET DAILY IN EVENING
     Route: 048
     Dates: start: 20130607

REACTIONS (7)
  - Eye haemorrhage [Unknown]
  - Eye disorder [Unknown]
  - Cataract [Unknown]
  - Retinal disorder [Unknown]
  - Post procedural complication [Unknown]
  - Vision blurred [Unknown]
  - Blood glucose increased [Recovered/Resolved]
